FAERS Safety Report 5823514-6 (Version None)
Quarter: 2008Q3

REPORT INFORMATION
  Report Type: 
  Country: None (occurrence: None)
  Receive Date: 20080725
  Receipt Date: 20080714
  Transmission Date: 20090109
  Serious: Yes (Hospitalization)
  Sender: FDA-Public Use
  Company Number: NL-PFIZER INC-2008059605

PATIENT
  Sex: Female
  Weight: 60 kg

DRUGS (3)
  1. NEURONTIN [Suspect]
     Indication: NEURALGIA
     Route: 048
     Dates: start: 20030404, end: 20080630
  2. TAVONIN [Concomitant]
     Route: 048
  3. AMITRIPTYLINE HCL [Concomitant]
     Route: 048

REACTIONS (2)
  - PHARYNGEAL OEDEMA [None]
  - SWELLING [None]
